FAERS Safety Report 4819307-9 (Version None)
Quarter: 2005Q4

REPORT INFORMATION
  Report Type: 
  Country: None (occurrence: None)
  Receive Date: 20051103
  Receipt Date: 20050406
  Transmission Date: 20060501
  Serious: Yes (Hospitalization)
  Sender: FDA-Public Use
  Company Number: US-MERCK-0504USA01053

PATIENT
  Age: 59 Year
  Sex: Female
  Weight: 116 kg

DRUGS (2)
  1. VIOXX [Suspect]
     Indication: ARTHRITIS
     Route: 048
     Dates: start: 20000101, end: 20040101
  2. ALEVE [Concomitant]
     Indication: PAIN
     Route: 065

REACTIONS (2)
  - ARTHROPATHY [None]
  - CARDIAC FAILURE CONGESTIVE [None]
